FAERS Safety Report 6542187-0 (Version None)
Quarter: 2010Q1

REPORT INFORMATION
  Report Type: 
  Country: None (occurrence: None)
  Receive Date: 20100119
  Receipt Date: 20091201
  Transmission Date: 20100710
  Serious: Yes (Hospitalization)
  Sender: FDA-Public Use
  Company Number: A0832068A

PATIENT
  Age: 49 Year
  Sex: Female
  Weight: 115.5 kg

DRUGS (6)
  1. AVANDIA [Suspect]
     Dosage: 4MG TWICE PER DAY
     Route: 048
     Dates: start: 20030101, end: 20050601
  2. MICRONASE [Concomitant]
     Dates: end: 20050601
  3. DAYPRO [Concomitant]
  4. DILTIAZEM [Concomitant]
  5. COZAAR [Concomitant]
  6. PRAVACHOL [Concomitant]

REACTIONS (2)
  - CARDIAC FAILURE CONGESTIVE [None]
  - SCAR [None]
